FAERS Safety Report 5347729-9 (Version None)
Quarter: 2007Q2

REPORT INFORMATION
  Report Type: 
  Country: None (occurrence: None)
  Receive Date: 20070606
  Receipt Date: 20070528
  Transmission Date: 20071010
  Serious: Yes (Other)
  Sender: FDA-Public Use
  Company Number: PT-JNJFOC-20070503778

PATIENT
  Age: 39 Year
  Sex: Female

DRUGS (4)
  1. REMICADE [Suspect]
     Indication: PSORIATIC ARTHROPATHY
     Route: 042
  2. REMICADE [Suspect]
     Indication: PSORIASIS
     Route: 042
  3. METHOTREXATE SODIUM [Concomitant]
     Indication: PSORIASIS
  4. METHOTREXATE SODIUM [Concomitant]
     Indication: PSORIATIC ARTHROPATHY

REACTIONS (4)
  - DYSPNOEA [None]
  - ERYTHEMA [None]
  - FACE OEDEMA [None]
  - HYPERSENSITIVITY [None]
